FAERS Safety Report 21409405 (Version 3)
Quarter: 2022Q4

REPORT INFORMATION
  Report Type: Report from Study
  Country: JP (occurrence: JP)
  Receive Date: 20221004
  Receipt Date: 20221122
  Transmission Date: 20230113
  Serious: Yes (Hospitalization, Other)
  Sender: FDA-Public Use
  Company Number: JP-SEATTLE GENETICS-2022SGN08977

PATIENT
  Age: 42 Year
  Sex: Male
  Weight: 51.4 kg

DRUGS (27)
  1. TUCATINIB [Suspect]
     Active Substance: TUCATINIB
     Indication: Adenocarcinoma gastric
     Dosage: 300 MG, BID
     Route: 048
     Dates: start: 20220901, end: 20220926
  2. TRASTUZUMAB [Suspect]
     Active Substance: TRASTUZUMAB
     Indication: Adenocarcinoma gastric
     Dosage: 8 MG/KG, SINGLE
     Route: 042
     Dates: start: 20220901, end: 20220901
  3. OXALIPLATIN [Suspect]
     Active Substance: OXALIPLATIN
     Indication: Adenocarcinoma gastric
     Dosage: 130 MG/M2, Q3WEEKS
     Route: 042
     Dates: start: 20220901
  4. CAPECITABINE [Suspect]
     Active Substance: CAPECITABINE
     Indication: Adenocarcinoma gastric
     Dosage: 1000 MG/M2, CYCLE 1: EVENING OF DAY 1 TO MORNING OF DAY 15; CYCLE 2 AND EACH SUBSEQUENT CYCLE: DAY 1
     Route: 048
     Dates: start: 20220901
  5. PEMBROLIZUMAB [Suspect]
     Active Substance: PEMBROLIZUMAB
     Indication: Adenocarcinoma gastric
     Dosage: 400 MG, EVERY 42 DAYS
     Route: 042
     Dates: start: 20220901
  6. LOPERAMIDE [Concomitant]
     Active Substance: LOPERAMIDE
     Dosage: 4 MG, TID ON DAYS 1-14 FOLLOWED BY BID ON DAYS 15-42
     Dates: start: 20220909
  7. HEPARINOID [Concomitant]
     Indication: Eczema
     Dosage: UNK
     Route: 062
     Dates: start: 20220911
  8. BETAMETHASONE BUTYRATE PROPIONATE [Concomitant]
     Active Substance: BETAMETHASONE BUTYRATE PROPIONATE
     Indication: Eczema
     Dosage: UNK
     Route: 062
     Dates: start: 20220911
  9. BILASTINE [Concomitant]
     Active Substance: BILASTINE
     Indication: Eczema
     Dosage: UNK
     Route: 048
     Dates: start: 20220911, end: 20220915
  10. DEXAMETHASONE [Concomitant]
     Active Substance: DEXAMETHASONE
     Indication: Chemotherapy side effect prophylaxis
     Dosage: UNK
     Route: 042
     Dates: start: 20220901
  11. DEXAMETHASONE [Concomitant]
     Active Substance: DEXAMETHASONE
     Indication: Nausea
     Dosage: UNK
     Route: 048
     Dates: start: 20220902
  12. DEXAMETHASONE [Concomitant]
     Active Substance: DEXAMETHASONE
     Dosage: UNK
     Route: 048
     Dates: start: 20220904, end: 20220905
  13. CALCIUM CHLORIDE ANHYDROUS\POTASSIUM CHLORIDE\SODIUM CHLORIDE\SODIUM L [Concomitant]
     Active Substance: CALCIUM CHLORIDE ANHYDROUS\POTASSIUM CHLORIDE\SODIUM CHLORIDE\SODIUM LACTATE
     Indication: Fluid replacement
     Dosage: UNK
     Route: 042
     Dates: start: 20220916, end: 20220920
  14. DEXTROSE [Concomitant]
     Active Substance: DEXTROSE
     Indication: Nutritional supplementation
     Dosage: 50 %
     Route: 042
     Dates: start: 20220916, end: 20220920
  15. PIPERACILLIN SODIUM\TAZOBACTAM SODIUM [Concomitant]
     Active Substance: PIPERACILLIN SODIUM\TAZOBACTAM SODIUM
     Indication: Pneumonitis aspiration
     Dosage: UNK
     Route: 042
     Dates: start: 20220916, end: 20220920
  16. AMINO ACIDS\DEXTROSE\ELECTROLYTES NOS\VITAMINS [Concomitant]
     Active Substance: AMINO ACIDS\DEXTROSE\ELECTROLYTES NOS\VITAMINS
     Indication: Decreased appetite
     Dosage: UNK
     Route: 042
     Dates: start: 20220831, end: 20220911
  17. AMINO ACIDS\DEXTROSE\ELECTROLYTES NOS\VITAMINS [Concomitant]
     Active Substance: AMINO ACIDS\DEXTROSE\ELECTROLYTES NOS\VITAMINS
     Dosage: UNK
     Route: 042
     Dates: start: 20220917, end: 20220919
  18. ACETAMINOPHEN [Concomitant]
     Active Substance: ACETAMINOPHEN
     Indication: Pyrexia
     Dosage: UNK
     Route: 048
     Dates: start: 20220910, end: 20220911
  19. ACETAMINOPHEN [Concomitant]
     Active Substance: ACETAMINOPHEN
     Indication: Pneumonitis aspiration
     Dosage: UNK
     Route: 042
     Dates: start: 20220917, end: 20220917
  20. CODEINE PHOSPHATE [Concomitant]
     Active Substance: CODEINE PHOSPHATE
     Indication: Cough
     Dosage: UNK
     Route: 048
     Dates: start: 20220818, end: 20220915
  21. DEXTROMETHORPHAN HYDROBROMIDE [Concomitant]
     Active Substance: DEXTROMETHORPHAN HYDROBROMIDE
     Indication: Cough
     Dosage: UNK
     Route: 048
     Dates: start: 20220818, end: 20220915
  22. RABEPRAZOLE SODIUM [Concomitant]
     Active Substance: RABEPRAZOLE SODIUM
     Indication: Gastritis prophylaxis
     Dosage: UNK
     Route: 048
     Dates: start: 202208, end: 20220915
  23. RABEPRAZOLE SODIUM [Concomitant]
     Active Substance: RABEPRAZOLE SODIUM
     Dosage: UNK
     Dates: start: 20220919
  24. OLANZAPINE [Concomitant]
     Active Substance: OLANZAPINE
     Indication: Nausea
     Dosage: UNK
     Route: 048
     Dates: start: 20220903, end: 20220915
  25. CLOBETASOL [Concomitant]
     Active Substance: CLOBETASOL
     Indication: Eczema
     Dosage: UNK
     Route: 062
     Dates: start: 20220910, end: 20220911
  26. PALONOSETRON HYDROCHLORIDE [Concomitant]
     Active Substance: PALONOSETRON HYDROCHLORIDE
     Indication: Chemotherapy side effect prophylaxis
     Dosage: UNK
     Route: 042
     Dates: start: 20220901
  27. FOSNETUPITANT CHLORIDE HYDROCHLORIDE [Concomitant]
     Active Substance: FOSNETUPITANT CHLORIDE HYDROCHLORIDE
     Indication: Chemotherapy side effect prophylaxis
     Dosage: UNK
     Route: 042
     Dates: start: 20220901

REACTIONS (2)
  - Drug hypersensitivity [Recovered/Resolved]
  - Pneumonitis aspiration [Not Recovered/Not Resolved]

NARRATIVE: CASE EVENT DATE: 20220921
